FAERS Safety Report 22683015 (Version 4)
Quarter: 2023Q4

REPORT INFORMATION
  Report Type: Spontaneous
  Country: US (occurrence: US)
  Receive Date: 20230707
  Receipt Date: 20231228
  Transmission Date: 20240109
  Serious: No
  Sender: FDA-Public Use
  Company Number: US-PFIZER INC-PV202300030008

PATIENT
  Age: 78 Year
  Sex: Female
  Weight: 70.7 kg

DRUGS (3)
  1. IBRANCE [Suspect]
     Active Substance: PALBOCICLIB
     Indication: Breast cancer female
     Dosage: TAKE 75 MG BY MOUTH DAILY AS NEEDED. TAKE WITH OR WITHOUT FOOD. FOLLOWED BY 7 DAYS OF REST
     Route: 048
  2. IBRANCE [Suspect]
     Active Substance: PALBOCICLIB
     Dosage: 75 MG, DAILY FOR 21 DAYS THEN OFF FOR 14 DAYS, MEDICATION MAY BE TAKEN WITH OR WITHOUT FOOD
     Route: 048
  3. NEURONTIN [Concomitant]
     Active Substance: GABAPENTIN
     Dosage: 300 MG CAPSULE: TAKE 2 EVERY MORNING, 1 AT NOON, 1 AT DINNER, AND 2 AT BEDTIME

REACTIONS (3)
  - Fall [Unknown]
  - Off label use [Unknown]
  - Product use issue [Unknown]
